FAERS Safety Report 7875423-9 (Version None)
Quarter: 2011Q4

REPORT INFORMATION
  Report Type: 
  Country: None (occurrence: None)
  Receive Date: 20111031
  Receipt Date: 20111020
  Transmission Date: 20120403
  Serious: Yes (Death)
  Sender: FDA-Public Use
  Company Number: PHHY2011HR93777

PATIENT
  Age: 53 Year
  Sex: Male

DRUGS (9)
  1. SANDIMMUNE [Suspect]
     Indication: IMMUNOSUPPRESSION
     Dosage: 50+75 MG
     Route: 048
     Dates: start: 20010901
  2. LESCOL XL [Suspect]
     Indication: HYPERLIPIDAEMIA
     Dosage: 80 MG, QD
     Route: 048
     Dates: start: 20060101
  3. THEOPHYLLINE [Concomitant]
     Dosage: 150 MG, BID
     Route: 048
     Dates: start: 20080101
  4. AMLODIPINE BESYLATE [Concomitant]
     Dosage: 10 MG
     Route: 048
     Dates: start: 20011001
  5. TEVETEN [Concomitant]
     Dosage: 600 MG, QD
     Route: 048
     Dates: start: 20080101
  6. REPAGLINIDE [Concomitant]
     Dosage: 1 G, TID
     Route: 048
     Dates: start: 20060201
  7. SYMBICORT [Concomitant]
     Dates: start: 20080101
  8. MYCOPHENOLATE MOFETIL (CELLCEPT) [Concomitant]
     Dosage: 1 G, BID
     Route: 048
     Dates: start: 20080101
  9. IRUMED [Concomitant]
     Dosage: 10 MG, QD
     Route: 048
     Dates: start: 20011101

REACTIONS (2)
  - BLOOD CREATINE PHOSPHOKINASE INCREASED [None]
  - DEATH [None]
